FAERS Safety Report 26138608 (Version 1)
Quarter: 2025Q4

REPORT INFORMATION
  Report Type: Spontaneous
  Country: US (occurrence: US)
  Receive Date: 20251210
  Receipt Date: 20251210
  Transmission Date: 20260118
  Serious: No
  Sender: ELI LILLY AND COMPANY
  Company Number: US-ELI_LILLY_AND_COMPANY-US202512009645

PATIENT
  Age: 76 Year

DRUGS (2)
  1. KISUNLA [Suspect]
     Active Substance: DONANEMAB-AZBT
     Indication: Product used for unknown indication
     Dosage: UNK, UNKNOWN
     Route: 065
  2. KISUNLA [Suspect]
     Active Substance: DONANEMAB-AZBT
     Dosage: UNK, UNKNOWN (6TH INFUSION)
     Route: 065

REACTIONS (1)
  - Cerebral microhaemorrhage [Unknown]
